FAERS Safety Report 8054923 (Version 2)
Quarter: 2012Q4

REPORT INFORMATION
  Report Type: 
  Country: US (occurrence: US)
  Receive Date: 20110726
  Receipt Date: 20120921
  Transmission Date: 20130627
  Serious: Yes (Hospitalization)
  Sender: FDA-Public Use
  Company Number: US-GLAXOSMITHKLINE-A0923850A

PATIENT
  Age: 74 Year
  Sex: Male
  Weight: 78.6 kg

DRUGS (1)
  1. AVANDIA [Suspect]
     Indication: DIABETES MELLITUS
     Route: 048
     Dates: start: 20020204, end: 200602

REACTIONS (2)
  - Myocardial infarction [Recovering/Resolving]
  - Cerebrovascular accident [Unknown]
